FAERS Safety Report 5323495-8 (Version None)
Quarter: 2007Q2

REPORT INFORMATION
  Report Type: 
  Country: None (occurrence: None)
  Receive Date: 20070508
  Receipt Date: 20070426
  Transmission Date: 20071010
  Serious: Yes (Hospitalization)
  Sender: FDA-Public Use
  Company Number: 2007AL001699

PATIENT
  Age: 31 Year
  Sex: Male

DRUGS (14)
  1. DIGOXIN [Suspect]
     Dosage: 0.25 MG;QD;
  2. FUROSEMIDE [Concomitant]
  3. BENAZEPRIL HYDROCHLORIDE [Concomitant]
  4. ASPIRIN [Concomitant]
  5. FLUTICASONE NASAL SPRAY [Concomitant]
  6. AMIODARONE HCL [Concomitant]
  7. BENAZEPRIL HYDROCHLORIDE [Concomitant]
  8. AMIODARONE HCL [Concomitant]
  9. ... [Concomitant]
  10. ... [Concomitant]
  11. ... [Concomitant]
  12. ... [Concomitant]
  13. ... [Concomitant]
  14. ... [Concomitant]

REACTIONS (8)
  - ASPARTATE AMINOTRANSFERASE INCREASED [None]
  - ATRIAL FIBRILLATION [None]
  - BILIRUBIN CONJUGATED INCREASED [None]
  - BLOOD BILIRUBIN INCREASED [None]
  - BLOOD CREATINE INCREASED [None]
  - BLOOD UREA INCREASED [None]
  - DRUG LEVEL FLUCTUATING [None]
  - NAUSEA [None]
